FAERS Safety Report 4577375-6 (Version None)
Quarter: 2005Q1

REPORT INFORMATION
  Report Type: 
  Country: None (occurrence: None)
  Receive Date: 20050210
  Receipt Date: 20050128
  Transmission Date: 20050727
  Serious: Yes (Other)
  Sender: FDA-Public Use
  Company Number: AU-GLAXOSMITHKLINE-B0370274A

PATIENT
  Age: 44 Year
  Sex: Female
  Weight: 69 kg

DRUGS (1)
  1. IMIGRAN [Suspect]
     Indication: MIGRAINE
     Route: 048
     Dates: start: 19980612, end: 19980614

REACTIONS (3)
  - AFFECT LABILITY [None]
  - DEPRESSION [None]
  - SUICIDE ATTEMPT [None]
